FAERS Safety Report 19771652 (Version 3)
Quarter: 2022Q2

REPORT INFORMATION
  Report Type: Spontaneous
  Country: US (occurrence: US)
  Receive Date: 20210901
  Receipt Date: 20220516
  Transmission Date: 20220720
  Serious: No
  Sender: FDA-Public Use
  Company Number: US-PFIZER INC-2021593319

PATIENT
  Age: 60 Year
  Sex: Female

DRUGS (5)
  1. IBRANCE [Suspect]
     Active Substance: PALBOCICLIB
     Dosage: 100 MG
     Dates: start: 20210510
  2. IBRANCE [Suspect]
     Active Substance: PALBOCICLIB
     Dosage: 100 MG
     Dates: start: 20210513
  3. IBRANCE [Suspect]
     Active Substance: PALBOCICLIB
     Dosage: 100 MG
     Dates: start: 20210515
  4. IBRANCE [Suspect]
     Active Substance: PALBOCICLIB
     Dosage: 100 MG
     Dates: start: 20210625
  5. IBRANCE [Suspect]
     Active Substance: PALBOCICLIB
     Dosage: 100 MG, CYCLIC, (DAILY FOR 14 DAYS AND 7 DAYS OFF EVERY 21 DAY CYCLE)

REACTIONS (14)
  - Product dose omission issue [Unknown]
  - Dizziness [Unknown]
  - Feeling hot [Unknown]
  - Feeling abnormal [Unknown]
  - Fatigue [Unknown]
  - Alopecia [Unknown]
  - Dry skin [Unknown]
  - Wisdom teeth removal [Unknown]
  - Rash [Unknown]
  - Urticaria [Unknown]
  - Feeling hot [Unknown]
  - Discomfort [Unknown]
  - Dry throat [Unknown]
  - Off label use [Unknown]

NARRATIVE: CASE EVENT DATE: 20210501
